FAERS Safety Report 22261777 (Version 1)
Quarter: 2023Q2

REPORT INFORMATION
  Report Type: Spontaneous
  Country: US (occurrence: US)
  Receive Date: 20230428
  Receipt Date: 20230428
  Transmission Date: 20230722
  Serious: Yes (Other)
  Sender: FDA-Public Use
  Company Number: US-ABBVIE-4745550

PATIENT
  Sex: Female

DRUGS (3)
  1. CREON [Suspect]
     Active Substance: PANCRELIPASE AMYLASE\PANCRELIPASE LIPASE\PANCRELIPASE PROTEASE
     Indication: Product used for unknown indication
     Dosage: 6 CAPSULES
     Route: 048
  2. CREON [Suspect]
     Active Substance: PANCRELIPASE AMYLASE\PANCRELIPASE LIPASE\PANCRELIPASE PROTEASE
     Indication: Product used for unknown indication
     Dosage: 1 CAPSULE, 36,00 UNITS
     Route: 048
     Dates: end: 202304
  3. BENTYL [Concomitant]
     Active Substance: DICYCLOMINE HYDROCHLORIDE
     Indication: Product used for unknown indication

REACTIONS (7)
  - Gastric bypass [Unknown]
  - Weight control [Unknown]
  - Fatigue [Not Recovered/Not Resolved]
  - Pancreatic failure [Unknown]
  - Dumping syndrome [Not Recovered/Not Resolved]
  - Arthralgia [Unknown]
  - Illness [Not Recovered/Not Resolved]
